FAERS Safety Report 8297929-3 (Version None)
Quarter: 2012Q2

REPORT INFORMATION
  Report Type: 
  Country: None (occurrence: None)
  Receive Date: 20120419
  Receipt Date: 20120417
  Transmission Date: 20120825
  Serious: Yes (Hospitalization)
  Sender: FDA-Public Use
  Company Number: US-AMGEN-USASP2012024186

PATIENT
  Age: 75 Year
  Sex: Female

DRUGS (3)
  1. CORTISONE                          /00014602/ [Concomitant]
  2. PROLIA [Suspect]
     Indication: OSTEOPOROSIS POSTMENOPAUSAL
     Dosage: UNK UNK, Q6MO
     Dates: start: 20111221
  3. COUMADIN [Concomitant]

REACTIONS (3)
  - THROMBOSIS [None]
  - CONTUSION [None]
  - DIVERTICULITIS [None]
